FAERS Safety Report 5004360-2 (Version None)
Quarter: 2006Q2

REPORT INFORMATION
  Report Type: 
  Country: None (occurrence: None)
  Receive Date: 20060517
  Receipt Date: 20060509
  Transmission Date: 20061013
  Serious: Yes (Hospitalization)
  Sender: FDA-Public Use
  Company Number: GB-ROSEMONTLT-UKRP0000024

PATIENT
  Age: 64 Year
  Sex: Female

DRUGS (3)
  1. VERAPAMIL [Suspect]
     Indication: ATRIAL FIBRILLATION
     Dosage: 80MG PER DAY
     Route: 065
  2. DIGOXIN [Suspect]
     Indication: ATRIAL FIBRILLATION
     Route: 065
  3. SOTALOL HCL [Suspect]
     Indication: ATRIAL FIBRILLATION
     Route: 065

REACTIONS (6)
  - ATRIAL FIBRILLATION [None]
  - COUGH [None]
  - DEPRESSED LEVEL OF CONSCIOUSNESS [None]
  - DRUG INTERACTION [None]
  - DYSPNOEA [None]
  - OLIGURIA [None]
